FAERS Safety Report 26020481 (Version 1)
Quarter: 2025Q4

REPORT INFORMATION
  Report Type: Spontaneous
  Country: US (occurrence: None)
  Receive Date: 20251109
  Receipt Date: 20251109
  Transmission Date: 20260118
  Serious: Yes (Life-Threatening, Hospitalization)
  Sender: FDA-CTU
  Company Number: None

PATIENT
  Age: 59 Year
  Sex: Female

DRUGS (1)
  1. PYRIDOXINE\TIRZEPATIDE [Suspect]
     Active Substance: PYRIDOXINE\TIRZEPATIDE

REACTIONS (1)
  - Volvulus [None]

NARRATIVE: CASE EVENT DATE: 20251108
